FAERS Safety Report 5017372-X (Version None)
Quarter: 2006Q2

REPORT INFORMATION
  Report Type: 
  Country: None (occurrence: None)
  Receive Date: 20060414
  Receipt Date: 20060302
  Transmission Date: 20061013
  Serious: No
  Sender: FDA-Public Use
  Company Number: 2006SP001024

PATIENT
  Age: 77 Year
  Sex: Female

DRUGS (1)
  1. LUNESTA [Suspect]
     Dosage: 2 MG; ORAL
     Route: 048
     Dates: start: 20051201

REACTIONS (4)
  - AMNESIA [None]
  - DRUG INEFFECTIVE [None]
  - INSOMNIA [None]
  - STOMACH DISCOMFORT [None]
